FAERS Safety Report 11413929 (Version 1)
Quarter: 2015Q3

REPORT INFORMATION
  Report Type: Spontaneous
  Country: US (occurrence: US)
  Receive Date: 20150824
  Receipt Date: 20150824
  Transmission Date: 20151125
  Serious: Yes (Hospitalization, Other)
  Sender: FDA-Public Use
  Company Number: US-GLAXOSMITHKLINE-US2015118729

PATIENT
  Age: 79 Year
  Sex: Male

DRUGS (3)
  1. BUPROPION SR [Suspect]
     Active Substance: BUPROPION
     Dosage: 150 MG, QD
  2. BUPROPION SR [Suspect]
     Active Substance: BUPROPION
     Indication: EX-TOBACCO USER
     Dosage: 150 MG, BID
     Route: 048
     Dates: start: 201504
  3. FUROSEMIDE. [Concomitant]
     Active Substance: FUROSEMIDE

REACTIONS (9)
  - Seizure [Unknown]
  - Dry mouth [Not Recovered/Not Resolved]
  - Staring [Unknown]
  - Decreased appetite [Not Recovered/Not Resolved]
  - Restlessness [Unknown]
  - Blood potassium decreased [Unknown]
  - Oropharyngeal pain [Unknown]
  - Tremor [Recovering/Resolving]
  - Ageusia [Not Recovered/Not Resolved]

NARRATIVE: CASE EVENT DATE: 20150715
